FAERS Safety Report 5895258-6 (Version None)
Quarter: 2008Q3

REPORT INFORMATION
  Report Type: 
  Country: None (occurrence: None)
  Receive Date: 20080924
  Receipt Date: 20080922
  Transmission Date: 20090109
  Serious: Yes (Other)
  Sender: FDA-Public Use
  Company Number: B0538399A

PATIENT
  Sex: Female

DRUGS (3)
  1. LANOXIN [Suspect]
     Indication: DRUG USE FOR UNKNOWN INDICATION
     Route: 048
     Dates: start: 20050101
  2. SIMVASTATIN [Concomitant]
  3. INDERAL [Concomitant]

REACTIONS (1)
  - VISUAL ACUITY REDUCED [None]
